FAERS Safety Report 7646535-X (Version None)
Quarter: 2011Q3

REPORT INFORMATION
  Report Type: 
  Country: None (occurrence: None)
  Receive Date: 20110729
  Receipt Date: 20110729
  Transmission Date: 20111222
  Serious: Yes (Life-Threatening)
  Sender: FDA-Public Use
  Company Number: None

PATIENT
  Sex: Female

DRUGS (2)
  1. XELODA [Suspect]
     Dosage: 2500MG TWICE A DAY ORAL FOR 14 DAYS ON CHANGE 7 DAYS OFF
     Route: 048
     Dates: start: 20110615
  2. XELODA [Suspect]
     Dates: start: 20110705

REACTIONS (3)
  - PAIN [None]
  - ERYTHEMA [None]
  - DYSPNOEA [None]
